FAERS Safety Report 14802678 (Version 1)
Quarter: 2018Q2

REPORT INFORMATION
  Report Type: Spontaneous
  Country: ES (occurrence: ES)
  Receive Date: 20180424
  Receipt Date: 20180424
  Transmission Date: 20180711
  Serious: Yes (Life-Threatening, Hospitalization, Other)
  Sender: FDA-Public Use
  Company Number: ES-PFIZER INC-2018165660

PATIENT
  Age: 78 Year
  Sex: Female

DRUGS (17)
  1. IVABRADINE [Concomitant]
     Active Substance: IVABRADINE
     Indication: CARDIAC FAILURE
     Dosage: UNK
  2. TIOTROPIUM BROMIDE [Concomitant]
     Active Substance: TIOTROPIUM BROMIDE
     Indication: ASTHMA
     Dosage: UNK
  3. BECLOMETHASONE [Concomitant]
     Active Substance: BECLOMETHASONE
     Indication: ASTHMA
     Dosage: UNK
  4. FORMOTEROL [Concomitant]
     Active Substance: FORMOTEROL
     Indication: ASTHMA
     Dosage: UNK
  5. DENOSUMAB [Concomitant]
     Active Substance: DENOSUMAB
     Indication: OSTEOPENIA
     Dosage: UNK
  6. INSULIN GLARGINE [Concomitant]
     Active Substance: INSULIN GLARGINE
     Indication: TYPE 2 DIABETES MELLITUS
     Dosage: 8 IU, DAILY
     Dates: start: 20160501
  7. RAMIPRIL. [Concomitant]
     Active Substance: RAMIPRIL
     Indication: CARDIAC FAILURE
     Dosage: UNK
  8. TRANGOREX [Suspect]
     Active Substance: AMIODARONE HYDROCHLORIDE
     Indication: ATRIAL FIBRILLATION
     Dosage: 200 MG, DAILY
     Route: 065
     Dates: start: 20140130, end: 20170316
  9. MONTELUKAST [Concomitant]
     Active Substance: MONTELUKAST SODIUM
     Indication: ASTHMA
     Dosage: UNK
  10. MOXIFLOXACIN. [Concomitant]
     Active Substance: MOXIFLOXACIN
     Indication: RESPIRATORY TRACT INFECTION
     Dosage: UNK
  11. ALPRAZOLAM. [Concomitant]
     Active Substance: ALPRAZOLAM
     Indication: ANXIETY
     Dosage: UNK
  12. SALBUTAMOL [Concomitant]
     Active Substance: ALBUTEROL
     Indication: ASTHMA
     Dosage: UNK
  13. RIVAROXABAN [Concomitant]
     Active Substance: RIVAROXABAN
     Dosage: 15 MG, UNK
     Dates: start: 20140120
  14. ATORVASTATIN [Concomitant]
     Active Substance: ATORVASTATIN
     Indication: HYPERCHOLESTEROLAEMIA
     Dosage: UNK
  15. DEFLAZACORT [Concomitant]
     Active Substance: DEFLAZACORT
     Indication: ASTHMA
     Dosage: UNK
  16. COLECALCIFEROL [Concomitant]
     Active Substance: CHOLECALCIFEROL
     Indication: OSTEOPENIA
     Dosage: UNK
  17. FUROSEMIDE. [Concomitant]
     Active Substance: FUROSEMIDE
     Indication: CARDIAC FAILURE
     Dosage: UNK

REACTIONS (1)
  - Pneumonitis [Recovered/Resolved]

NARRATIVE: CASE EVENT DATE: 20170316
